FAERS Safety Report 8194247-9 (Version None)
Quarter: 2012Q1

REPORT INFORMATION
  Report Type: 
  Country: None (occurrence: None)
  Receive Date: 20120308
  Receipt Date: 20120226
  Transmission Date: 20120608
  Serious: Yes (Other)
  Sender: FDA-Public Use
  Company Number: NO-GLAXOSMITHKLINE-A0968861A

PATIENT
  Sex: Male

DRUGS (3)
  1. NICORETTE [Suspect]
     Route: 002
  2. NICORETTE [Suspect]
     Route: 002
  3. NICORETTE [Suspect]
     Route: 062

REACTIONS (2)
  - PSORIASIS [None]
  - RASH GENERALISED [None]
